FAERS Safety Report 9303063 (Version 3)
Quarter: 2013Q3

REPORT INFORMATION
  Report Type: Report from Study
  Country: JP (occurrence: JP)
  Receive Date: 20130522
  Receipt Date: 20130711
  Transmission Date: 20140515
  Serious: Yes (Hospitalization, Other)
  Sender: FDA-Public Use
  Company Number: JP-PFIZER INC-2013154020

PATIENT
  Age: 72 Year
  Sex: Male
  Weight: 56 kg

DRUGS (10)
  1. ZOSYN [Suspect]
     Indication: FEBRILE NEUTROPENIA
     Dosage: 4.5 G, 2X/DAY
     Route: 041
     Dates: start: 20130507, end: 20130512
  2. DOCETAXEL [Suspect]
     Indication: PROSTATE CANCER METASTATIC
     Dosage: UNK
     Route: 041
     Dates: start: 20130430, end: 20130430
  3. HANGE-SHASHIN-TO [Concomitant]
     Indication: PROPHYLAXIS
     Dosage: 7.5 G, DAILY
     Route: 048
     Dates: start: 20130414, end: 20130511
  4. MAG-LAX [Concomitant]
     Indication: CONSTIPATION
     Dosage: 990 MG, DAILY
     Route: 048
     Dates: start: 20121011, end: 20130511
  5. SOLDEM 3A [Concomitant]
     Indication: FLUID REPLACEMENT
     Dosage: 500 ML, DAILY
     Route: 041
     Dates: start: 20130507, end: 20130511
  6. SOLDEM 3A [Concomitant]
     Dosage: 40 MG, UNK
     Route: 048
  7. VEEN-F [Concomitant]
     Indication: FLUID REPLACEMENT
     Dosage: 500 ML, DAILY
     Route: 041
     Dates: start: 20130507, end: 20130511
  8. GRAN [Concomitant]
     Indication: WHITE BLOOD CELL COUNT DECREASED
     Dosage: 75 UG, DAILY
     Route: 058
     Dates: start: 20130510, end: 20130511
  9. OMEPRAL [Concomitant]
     Indication: PROPHYLAXIS
     Dosage: 40 MG, DAILY
     Route: 042
     Dates: start: 20130511
  10. B-FLUID [Concomitant]
     Indication: NUTRITIONAL SUPPLEMENTATION
     Dosage: 1000 ML, DAILY
     Route: 041
     Dates: start: 20130511, end: 20130512

REACTIONS (1)
  - Interstitial lung disease [Recovered/Resolved]
